FAERS Safety Report 8913853 (Version 1)
Quarter: 2012Q4

REPORT INFORMATION
  Report Type: Spontaneous
  Country: US (occurrence: None)
  Receive Date: 20121115
  Receipt Date: 20121115
  Transmission Date: 20130627
  Serious: Yes (Other)
  Sender: FDA-Public Use
  Company Number: None

PATIENT
  Age: 17 Year
  Sex: Male

DRUGS (1)
  1. BUPROPION [Suspect]
     Indication: DYSTHYMIA
     Dosage: 300mg dry po
     Route: 048

REACTIONS (3)
  - Agitation [None]
  - Belligerence [None]
  - Unevaluable event [None]
